FAERS Safety Report 8573989-7 (Version None)
Quarter: 2012Q3

REPORT INFORMATION
  Report Type: 
  Country: None (occurrence: None)
  Receive Date: 20120806
  Receipt Date: 20120726
  Transmission Date: 20120928
  Serious: Yes (Hospitalization)
  Sender: FDA-Public Use
  Company Number: AU-PFIZER INC-2012180845

PATIENT
  Age: 66 Year
  Sex: Male
  Weight: 78.2 kg

DRUGS (4)
  1. LORATADINE [Concomitant]
     Indication: URTICARIA
     Dosage: 20 MG PER DAY
     Route: 048
     Dates: start: 20120613
  2. FEXOFENADINE HYDROCHLORIDE [Concomitant]
     Indication: URTICARIA
     Dosage: 180 MG PER DAY
     Route: 048
     Dates: start: 20120613
  3. FELDENE [Suspect]
     Indication: PAIN
     Dosage: 20 MG PER DAY
     Route: 048
     Dates: start: 20120514
  4. BLINDED THERAPY [Suspect]
     Indication: NON-SMALL CELL LUNG CANCER
     Route: 030
     Dates: start: 20120605, end: 20120605

REACTIONS (1)
  - GASTROOESOPHAGEAL REFLUX DISEASE [None]
